FAERS Safety Report 12495413 (Version 1)
Quarter: 2016Q2

REPORT INFORMATION
  Report Type: Spontaneous
  Country: GB (occurrence: GB)
  Receive Date: 20160624
  Receipt Date: 20160624
  Transmission Date: 20160815
  Serious: Yes (Hospitalization)
  Sender: FDA-Public Use
  Company Number: GB-ACTAVIS-2016-13005

PATIENT
  Age: 84 Year
  Sex: Female
  Weight: 58.7 kg

DRUGS (3)
  1. CLOPIDOGREL (UNKNOWN) [Suspect]
     Active Substance: CLOPIDOGREL BISULFATE
     Indication: ACUTE CORONARY SYNDROME
     Dosage: 300 MG, UNK (STAT)
     Route: 065
     Dates: start: 20160604, end: 20160605
  2. ASPIRIN. [Suspect]
     Active Substance: ASPIRIN
     Indication: ACUTE CORONARY SYNDROME
     Dosage: 300 MG, UNK (STAT)
     Route: 065
     Dates: start: 20160604, end: 20160605
  3. DALTEPARIN [Suspect]
     Active Substance: DALTEPARIN
     Indication: PRODUCT USED FOR UNKNOWN INDICATION
     Dosage: UNK
     Route: 058
     Dates: start: 20160604, end: 20160606

REACTIONS (1)
  - Haematoma [Recovering/Resolving]
